FAERS Safety Report 23471519 (Version 3)
Quarter: 2024Q3

REPORT INFORMATION
  Report Type: Spontaneous
  Country: US (occurrence: US)
  Receive Date: 20240202
  Receipt Date: 20240713
  Transmission Date: 20241017
  Serious: No
  Sender: SANOFI AVENTIS
  Company Number: US-SA-2024SA026308

PATIENT
  Age: 49 Year
  Sex: Female

DRUGS (2)
  1. DUPIXENT [Suspect]
     Active Substance: DUPILUMAB
     Indication: Eczema
     Dosage: 300 MG, QOW
     Route: 058
     Dates: start: 20231211
  2. DUPIXENT [Suspect]
     Active Substance: DUPILUMAB
     Indication: Dermatitis atopic

REACTIONS (13)
  - Rash pruritic [Unknown]
  - Sleep disorder [Unknown]
  - Alopecia [Unknown]
  - Skin fissures [Unknown]
  - Dry skin [Unknown]
  - Therapeutic response decreased [Unknown]
  - Skin exfoliation [Unknown]
  - Vision blurred [Unknown]
  - Pruritus [Unknown]
  - Injection site pain [Unknown]
  - Eye pruritus [Unknown]
  - Accidental exposure to product [Unknown]
  - Exposure via skin contact [Unknown]

NARRATIVE: CASE EVENT DATE: 20240101
